FAERS Safety Report 17463568 (Version 2)
Quarter: 2020Q1

REPORT INFORMATION
  Report Type: Spontaneous
  Country: JP (occurrence: JP)
  Receive Date: 20200226
  Receipt Date: 20200303
  Transmission Date: 20200409
  Serious: Yes (Hospitalization, Disabling, Other)
  Sender: FDA-Public Use
  Company Number: JP-PFIZER INC-2020078568

PATIENT
  Age: 73 Year
  Sex: Male

DRUGS (3)
  1. METHOTREXATE SODIUM. [Suspect]
     Active Substance: METHOTREXATE SODIUM
     Indication: RHEUMATOID ARTHRITIS
     Dosage: 8 MG, WEEKLY
     Route: 048
     Dates: start: 201603, end: 201811
  2. PREDNISOLONE. [Concomitant]
     Active Substance: PREDNISOLONE
     Dosage: 8 MG, DAILY
  3. IGURATIMOD [Concomitant]
     Active Substance: IGURATIMOD
     Dosage: 50 MG, DAILY

REACTIONS (8)
  - Lymphoma [Recovering/Resolving]
  - Weight decreased [Unknown]
  - Vertebral column mass [Recovering/Resolving]
  - Intestinal mass [Recovering/Resolving]
  - Stomatitis [Unknown]
  - Pericardial mass [Recovering/Resolving]
  - Mediastinal mass [Recovering/Resolving]
  - Lymphoproliferative disorder [Unknown]

NARRATIVE: CASE EVENT DATE: 201809
